FAERS Safety Report 4340798-4 (Version None)
Quarter: 2004Q2

REPORT INFORMATION
  Report Type: 
  Country: None (occurrence: None)
  Receive Date: 20040419
  Receipt Date: 20020613
  Transmission Date: 20050107
  Serious: No
  Sender: FDA-Public Use
  Company Number: US-GLAXOSMITHKLINE-A0371715A

PATIENT
  Age: 43 Year
  Sex: Male

DRUGS (3)
  1. ESKALITH [Suspect]
     Dosage: 450MG THREE TIMES PER DAY
     Dates: start: 19960101
  2. NAVANE [Concomitant]
  3. COGENTIN [Concomitant]

REACTIONS (3)
  - MEDICATION ERROR [None]
  - NO ADVERSE EFFECT [None]
  - POLLAKIURIA [None]
